FAERS Safety Report 9679269 (Version 2)
Quarter: 2014Q1

REPORT INFORMATION
  Report Type: Report from Study
  Country: GB (occurrence: GB)
  Receive Date: 20131109
  Receipt Date: 20140117
  Transmission Date: 20141002
  Serious: Yes (Hospitalization)
  Sender: FDA-Public Use
  Company Number: GB-ROCHE-1297978

PATIENT
  Age: 47 Year
  Sex: Female
  Weight: 124 kg

DRUGS (2)
  1. TOCILIZUMAB [Suspect]
     Indication: RHEUMATOID ARTHRITIS
     Dosage: DATE OF LAST DOSE PRIOR TO EVENT: 03/JUL/2013
     Route: 065
     Dates: start: 20110222
  2. METHOTREXATE [Concomitant]
     Route: 065

REACTIONS (1)
  - Cholecystitis [Recovered/Resolved]
